FAERS Safety Report 5834321-2 (Version None)
Quarter: 2008Q3

REPORT INFORMATION
  Report Type: 
  Country: None (occurrence: None)
  Receive Date: 20080731
  Receipt Date: 20080718
  Transmission Date: 20090109
  Serious: Yes (Hospitalization)
  Sender: FDA-Public Use
  Company Number: 235833J08USA

PATIENT
  Age: 27 Year
  Sex: Female
  Weight: 70.3075 kg

DRUGS (8)
  1. REBIF [Suspect]
     Indication: MULTIPLE SCLEROSIS
     Dosage: 44 MCG, 3 IN 1 WEEKS, SUBCUTANEOUS
     Route: 058
     Dates: start: 20070618
  2. ZYRTEC [Concomitant]
  3. TOPAMAX [Concomitant]
  4. ZOMIG [Concomitant]
  5. BIRTH CONTROL (ORAL CONTRACEPTIVE NOS) [Concomitant]
  6. VESICARE [Concomitant]
  7. CYMBALTA [Concomitant]
  8. LYRICA [Concomitant]

REACTIONS (2)
  - MULTIPLE SCLEROSIS [None]
  - URINARY TRACT INFECTION [None]
